FAERS Safety Report 9575095 (Version 1)
Quarter: 2013Q4

REPORT INFORMATION
  Report Type: Spontaneous
  Country: FI (occurrence: FI)
  Receive Date: 20131001
  Receipt Date: 20131001
  Transmission Date: 20140711
  Serious: Yes (Other)
  Sender: FDA-Public Use
  Company Number: FI-MYLANLABS-2013S1021195

PATIENT
  Age: 7 Decade
  Sex: Female

DRUGS (8)
  1. TERIPARATIDE [Suspect]
     Indication: OSTEOPOROSIS
     Route: 065
     Dates: start: 200606
  2. ALENDRONIC ACID [Suspect]
     Indication: OSTEOPOROSIS
     Route: 065
     Dates: start: 200601
  3. CALCIUM [Concomitant]
     Indication: SUPPLEMENTATION THERAPY
     Route: 065
     Dates: start: 200601
  4. COLECALCIFEROL [Concomitant]
     Indication: SUPPLEMENTATION THERAPY
     Route: 065
     Dates: start: 200601
  5. CARVEDILOL [Concomitant]
     Indication: HYPERTENSION
     Route: 065
  6. BETAXOLOL [Concomitant]
     Indication: HYPERTENSION
     Route: 065
  7. IBANDRONIC ACID [Concomitant]
     Indication: OSTEOPOROSIS
     Route: 065
     Dates: end: 200806
  8. ZOLEDRONIC ACID [Concomitant]
     Indication: OSTEOPOROSIS
     Dosage: INFUSION
     Route: 050
     Dates: start: 200806

REACTIONS (2)
  - Plasma cell myeloma [Unknown]
  - Gastrointestinal disorder [Unknown]
